FAERS Safety Report 20477396 (Version 1)
Quarter: 2022Q1

REPORT INFORMATION
  Report Type: Spontaneous
  Country: JP (occurrence: JP)
  Receive Date: 20220215
  Receipt Date: 20220215
  Transmission Date: 20220423
  Serious: Yes (Hospitalization)
  Sender: FDA-Public Use
  Company Number: JP-STRIDES ARCOLAB LIMITED-2022SP001339

PATIENT
  Sex: Male

DRUGS (5)
  1. PREDNISOLONE [Suspect]
     Active Substance: PREDNISOLONE
     Indication: Dermatomyositis
     Dosage: 2 MILLIGRAM/KILOGRAM PER DAY
     Route: 048
  2. PREDNISOLONE [Suspect]
     Active Substance: PREDNISOLONE
     Dosage: UNK (TAPERED OFF), AFTER 2.5 YEARS
     Route: 065
  3. PREDNISOLONE [Suspect]
     Active Substance: PREDNISOLONE
     Dosage: UNK, STARTED IN COMBINATION WITH EPINASTINE AND RUPATADINE FUMARATE AND LATER WITH THIAMAZOLE
     Route: 065
  4. METHYLPREDNISOLONE [Concomitant]
     Active Substance: METHYLPREDNISOLONE
     Indication: Dermatomyositis
     Dosage: 30 MILLIGRAM/KILOGRAM PER DAY (PULSE THERAPY; TWO COURSES; THREE CONSECUTIVE DAYS EACH)
     Route: 065
  5. METHOTREXATE [Concomitant]
     Active Substance: METHOTREXATE
     Indication: Dermatomyositis
     Dosage: 0.4 MILLIGRAM/KILOGRAM PER WEEK
     Route: 065

REACTIONS (1)
  - Symptom masked [Unknown]
